FAERS Safety Report 7220666-0 (Version None)
Quarter: 2011Q1

REPORT INFORMATION
  Report Type: 
  Country: None (occurrence: None)
  Receive Date: 20110111
  Receipt Date: 20110107
  Transmission Date: 20110831
  Serious: Yes (Hospitalization, Other)
  Sender: FDA-Public Use
  Company Number: US-AMGEN-USASP2011001006

PATIENT

DRUGS (1)
  1. ENBREL [Suspect]
     Indication: PSORIASIS
     Dosage: 50 MG, QWK
     Dates: start: 20040601, end: 20100801

REACTIONS (3)
  - PSORIASIS [None]
  - INTERVERTEBRAL DISC PROTRUSION [None]
  - STAPHYLOCOCCAL INFECTION [None]
